FAERS Safety Report 6396090-X (Version None)
Quarter: 2009Q4

REPORT INFORMATION
  Report Type: 
  Country: None (occurrence: None)
  Receive Date: 20091009
  Receipt Date: 20091002
  Transmission Date: 20100525
  Serious: Yes (Other)
  Sender: FDA-Public Use
  Company Number: US-GENENTECH-291659

PATIENT

DRUGS (3)
  1. BEVACIZUMAB [Suspect]
     Indication: GLIOMA
     Dosage: 10 MG/KG, DAYS 1+15
     Route: 042
     Dates: start: 20061226
  2. IRINOTECAN HCL [Suspect]
     Indication: GLIOMA
     Dosage: 250 MG/M2, Q2W
     Dates: start: 20081226
  3. LAMICTAL [Concomitant]
     Indication: DRUG USE FOR UNKNOWN INDICATION

REACTIONS (1)
  - CONVULSION [None]
